FAERS Safety Report 4989296-5 (Version None)
Quarter: 2006Q2

REPORT INFORMATION
  Report Type: 
  Country: None (occurrence: None)
  Receive Date: 20060425
  Receipt Date: 20060413
  Transmission Date: 20061013
  Serious: Yes (Hospitalization, Other)
  Sender: FDA-Public Use
  Company Number: 2005154774

PATIENT
  Age: 64 Year
  Sex: Female
  Weight: 88.4514 kg

DRUGS (13)
  1. NEURONTIN [Suspect]
     Indication: NEURALGIA
     Dosage: 900 MG (300 MG, 3 IN 1 D), ORAL
     Route: 048
  2. DETROL [Suspect]
     Indication: BLADDER DISORDER
     Dosage: ORAL
     Route: 048
  3. OXYBUTYNIN CHLORIDE [Suspect]
     Indication: BLADDER DISORDER
     Dosage: TRANSDERMAL
     Route: 062
     Dates: start: 20050101
  4. GABAPENTIN [Suspect]
     Indication: NEURALGIA
     Dosage: (800 MG)
  5. DURAGESIC-100 [Concomitant]
  6. PLAVIX [Concomitant]
  7. LISINOPRIL [Concomitant]
  8. HUMALOG [Concomitant]
  9. SYNTHROID [Concomitant]
  10. RITALIN [Concomitant]
  11. ULTRAM [Concomitant]
  12. VICODIN [Concomitant]
  13. MAXALT [Concomitant]

REACTIONS (6)
  - CEREBROVASCULAR ACCIDENT [None]
  - DISEASE RECURRENCE [None]
  - DRUG INEFFECTIVE [None]
  - NEURALGIA [None]
  - PHARMACEUTICAL PRODUCT COMPLAINT [None]
  - TREATMENT NONCOMPLIANCE [None]
